FAERS Safety Report 20591871 (Version 1)
Quarter: 2022Q1

REPORT INFORMATION
  Report Type: Other
  Country: PL (occurrence: PL)
  Receive Date: 20220314
  Receipt Date: 20220314
  Transmission Date: 20220423
  Serious: Yes (Hospitalization, Disabling, Other)
  Sender: FDA-Public Use
  Company Number: PL-KRKA-PL2021K16243LIT

PATIENT
  Age: 83 Year
  Sex: Female
  Weight: 91 kg

DRUGS (94)
  1. ALBUTEROL [Interacting]
     Active Substance: ALBUTEROL
     Dosage: 100 MCG, DAILY (1-0-0)
     Route: 065
  2. BETAHISTINE [Interacting]
     Active Substance: BETAHISTINE
     Dosage: 24 MG, DAILY (0-1-0)
     Route: 065
  3. TORSEMIDE [Suspect]
     Active Substance: TORSEMIDE
  4. TRAMADOL [Interacting]
     Active Substance: TRAMADOL
     Dosage: 100 MG, DAILY (DOSING 0-1-0)
     Route: 065
  5. ZOLPIDEM [Interacting]
     Active Substance: ZOLPIDEM TARTRATE
     Indication: Product used for unknown indication
     Dosage: 10 MG, DAILY (0-0-1)
     Route: 065
  6. DABIGATRAN [Interacting]
     Active Substance: DABIGATRAN
     Dosage: 110 MG, BID (1-0-1)
     Route: 065
  7. HYDROXYZINE [Interacting]
     Active Substance: HYDROXYZINE HYDROCHLORIDE
     Dosage: 25 MG, AS NEEDED, AV. TWICE DAILY), STRENGTH 25 MG
     Route: 065
  8. ALLOPURINOL [Interacting]
     Active Substance: ALLOPURINOL
     Dosage: 100 MG, DAILY (DOSING 1-0-0)
     Route: 065
  9. DEXTROSE\NIKETHAMIDE [Interacting]
     Active Substance: DEXTROSE\NIKETHAMIDE
     Dosage: 1.5 MG/125 MG, AS NEEDED
  10. RAMIPRIL [Interacting]
     Active Substance: RAMIPRIL
     Indication: Product used for unknown indication
     Dosage: 5 MG, DAILY (DOSING 1-0-0)
     Route: 065
  11. CITALOPRAM [Interacting]
     Active Substance: CITALOPRAM HYDROBROMIDE
     Dosage: 40 MG, DAILY (1-0-0)
     Route: 065
  12. ALPRAZOLAM [Interacting]
     Active Substance: ALPRAZOLAM
     Dosage: 0.5 MG, BID (AS NEEDED, AV)
     Route: 065
  13. GLICLAZIDE [Interacting]
     Active Substance: GLICLAZIDE
     Dosage: 60 MG, TID (1-1-1)
     Route: 065
  14. METOPROLOL [Interacting]
     Active Substance: METOPROLOL
     Dosage: 50 MG, BID (DOSING 1-0-1)
     Route: 065
  15. LEVOTHYROXINE [Interacting]
     Active Substance: LEVOTHYROXINE
     Dosage: 100 MCG, UNK (AS NEEDED)
     Route: 065
  16. METOCLOPRAMIDE [Interacting]
     Active Substance: METOCLOPRAMIDE
     Indication: Constipation
     Dosage: 10 MG, QD
     Route: 065
  17. SPIRONOLACTONE [Interacting]
     Active Substance: SPIRONOLACTONE
     Dosage: 100 MILLIGRAM, AS NEEDED 2 TABLETS
     Route: 065
  18. ACETAMINOPHEN [Interacting]
     Active Substance: ACETAMINOPHEN
     Dosage: 500 MG, DAILY (0-0-1)
     Route: 065
  19. ISOSORBIDE MONONITRATE [Interacting]
     Active Substance: ISOSORBIDE MONONITRATE
     Indication: Product used for unknown indication
     Dosage: 50 MILLIGRAM, AS NEEDED, AVERAGE 1 -2 X/24
     Route: 065
  20. ISOSORBIDE MONONITRATE [Interacting]
     Active Substance: ISOSORBIDE MONONITRATE
     Dosage: 50 MG, BID (AS NEEDED, AV. ONCE/TWICE DAILY)
     Route: 065
  21. HYDROCHLOROTHIAZIDE [Interacting]
     Active Substance: HYDROCHLOROTHIAZIDE
     Dosage: 25 MG
     Route: 065
  22. ATORVASTATIN [Interacting]
     Active Substance: ATORVASTATIN
     Dosage: 20 MG, DAILY (DOSING 0-0-1)
     Route: 065
  23. FUROSEMIDE [Interacting]
     Active Substance: FUROSEMIDE
     Dosage: 40 MG, TID (3/DAY)
     Route: 065
  24. METFORMIN [Interacting]
     Active Substance: METFORMIN HYDROCHLORIDE
  25. POTASSIUM CHLORIDE [Interacting]
     Active Substance: POTASSIUM CHLORIDE
     Dosage: 391 MG, EVERY OTHER DAY
  26. TRAMADOL [Suspect]
     Active Substance: TRAMADOL
     Indication: Product used for unknown indication
     Dosage: 100 MG
     Route: 065
  27. TRAMADOL [Suspect]
     Active Substance: TRAMADOL
     Dosage: 50 MG, WRAZIE BOLU
     Route: 065
  28. POTASSIUM CHLORIDE [Suspect]
     Active Substance: POTASSIUM CHLORIDE
     Indication: Product used for unknown indication
     Dosage: 1 DF EVERY 2 DAYS/1 DF EVERY 2 DAYS/391 MG K+
     Route: 065
  29. POTASSIUM CHLORIDE [Suspect]
     Active Substance: POTASSIUM CHLORIDE
     Indication: Product used for unknown indication
     Dosage: 391 MG, BID
     Route: 065
  30. BETAHISTINE [Suspect]
     Active Substance: BETAHISTINE
     Indication: Product used for unknown indication
  31. ALLOPURINOL [Suspect]
     Active Substance: ALLOPURINOL
     Indication: Product used for unknown indication
  32. METOCLOPRAMIDE [Suspect]
     Active Substance: METOCLOPRAMIDE
  33. ATORVASTATIN [Suspect]
     Active Substance: ATORVASTATIN
     Indication: Product used for unknown indication
  34. HYDROXYZINE [Suspect]
     Active Substance: HYDROXYZINE HYDROCHLORIDE
     Indication: Product used for unknown indication
  35. SPIRONOLACTONE [Suspect]
     Active Substance: SPIRONOLACTONE
     Indication: Product used for unknown indication
  36. ISOSORBIDE MONONITRATE [Suspect]
     Active Substance: ISOSORBIDE MONONITRATE
     Indication: Product used for unknown indication
  37. POTASSIUM CHLORIDE [Suspect]
     Active Substance: POTASSIUM CHLORIDE
     Dosage: 1 TABLET (391 K +) EVERY 2 DAYS
     Route: 065
  38. ZOLPIDEM [Suspect]
     Active Substance: ZOLPIDEM TARTRATE
     Indication: Product used for unknown indication
  39. HYDROXYZINE [Suspect]
     Active Substance: HYDROXYZINE HYDROCHLORIDE
     Indication: Product used for unknown indication
  40. TORSEMIDE [Concomitant]
     Active Substance: TORSEMIDE
     Indication: Product used for unknown indication
  41. TRAMADOL [Suspect]
     Active Substance: TRAMADOL
     Indication: Pain
  42. ALPRAZOLAM [Suspect]
     Active Substance: ALPRAZOLAM
     Indication: Product used for unknown indication
     Dosage: 2 DF, QD/0,5 MG, AD HOC, USUALLY
     Route: 065
  43. OMEPRAZOLE [Suspect]
     Active Substance: OMEPRAZOLE
     Indication: Product used for unknown indication
  44. OMEPRAZOLE [Suspect]
     Active Substance: OMEPRAZOLE
     Indication: Duodenal ulcer
  45. FUROSEMIDE [Suspect]
     Active Substance: FUROSEMIDE
     Indication: Product used for unknown indication
  46. ACETAMINOPHEN [Suspect]
     Active Substance: ACETAMINOPHEN
     Indication: Product used for unknown indication
     Dosage: 500 MG, BID
     Route: 065
  47. ACETAMINOPHEN [Suspect]
     Active Substance: ACETAMINOPHEN
     Indication: Product used for unknown indication
  48. METFORMIN [Concomitant]
     Active Substance: METFORMIN HYDROCHLORIDE
     Indication: Type 2 diabetes mellitus
     Dosage: UNK
  49. DABIGATRAN [Suspect]
     Active Substance: DABIGATRAN
     Indication: Product used for unknown indication
  50. METOPROLOL [Suspect]
     Active Substance: METOPROLOL
     Indication: Hypertension
     Dosage: 50 MG, BID/1-0-1/2
     Route: 065
  51. METOPROLOL [Suspect]
     Active Substance: METOPROLOL
     Indication: Product used for unknown indication
     Dosage: 50 MG 1-0-1/2
     Route: 065
  52. VORTIOXETINE [Concomitant]
     Active Substance: VORTIOXETINE
     Indication: Product used for unknown indication
  53. GLICLAZIDE [Suspect]
     Active Substance: GLICLAZIDE
     Indication: Product used for unknown indication
  54. LEVOTHYROXINE [Suspect]
     Active Substance: LEVOTHYROXINE
     Indication: Product used for unknown indication
  55. RAMIPRIL [Suspect]
     Active Substance: RAMIPRIL
     Indication: Cardiac failure
     Dosage: 5 MG, QD
     Route: 065
  56. DEXTROSE\NIKETHAMIDE [Suspect]
     Active Substance: DEXTROSE\NIKETHAMIDE
     Indication: Product used for unknown indication
     Dosage: UNK, 1,5 + 125 MG, AD HOC
     Route: 065
  57. ZOLPIDEM [Suspect]
     Active Substance: ZOLPIDEM TARTRATE
     Indication: Product used for unknown indication
     Dosage: 10 MG, UNK (AS NEEDED)
     Route: 065
  58. ALBUTEROL SULFATE [Suspect]
     Active Substance: ALBUTEROL SULFATE
     Indication: Product used for unknown indication
  59. ALBUTEROL SULFATE [Suspect]
     Active Substance: ALBUTEROL SULFATE
     Indication: Bronchospasm
  60. QUETIAPINE [Concomitant]
     Active Substance: QUETIAPINE
     Indication: Product used for unknown indication
     Dosage: 25 MG, DAILY (1-0-0)
     Route: 065
  61. CITALOPRAM [Suspect]
     Active Substance: CITALOPRAM HYDROBROMIDE
     Indication: Depression
     Dosage: 20 MG, BID (1-1-0)
     Route: 065
  62. HYDROCHLOROTHIAZIDE [Suspect]
     Active Substance: HYDROCHLOROTHIAZIDE
     Indication: Product used for unknown indication
     Dosage: 25 MG, QD/1-0-0
     Route: 065
  63. OMEPRAZOLE [Suspect]
     Active Substance: OMEPRAZOLE
     Indication: Product used for unknown indication
     Dosage: 100 MILLIGRAM, 1-1-0
     Route: 065
  64. OMEPRAZOLE [Suspect]
     Active Substance: OMEPRAZOLE
     Indication: Duodenal ulcer
  65. TORSEMIDE [Suspect]
     Active Substance: TORSEMIDE
  66. FUROSEMIDE SODIUM [Interacting]
     Active Substance: FUROSEMIDE SODIUM
  67. SPIRONOLACTONE [Interacting]
     Active Substance: SPIRONOLACTONE
  68. BETAHISTINE HYDROCHLORIDE [Interacting]
     Active Substance: BETAHISTINE HYDROCHLORIDE
  69. NIKETHAMIDE [Interacting]
     Active Substance: NIKETHAMIDE
     Dosage: 125 MG, UNK (1.5+125 MG) AS NEEDED
     Route: 065
  70. QUETIAPINE [Suspect]
     Active Substance: QUETIAPINE
  71. LEVOTHYROXINE [Interacting]
     Active Substance: LEVOTHYROXINE
  72. ATORVASTATIN [Interacting]
     Active Substance: ATORVASTATIN
  73. ALPRAZOLAM [Interacting]
     Active Substance: ALPRAZOLAM
     Indication: Product used for unknown indication
  74. VITAMIN D3 [Suspect]
     Active Substance: CHOLECALCIFEROL
     Dosage: UNK, QD
     Route: 065
  75. HYDROXYZINE HYDROCHLORIDE [Interacting]
     Active Substance: HYDROXYZINE HYDROCHLORIDE
     Indication: Product used for unknown indication
  76. DENOSUMAB [Suspect]
     Active Substance: DENOSUMAB
     Dosage: 60 MG.
     Route: 065
  77. METOCLOPRAMIDE [Suspect]
     Active Substance: METOCLOPRAMIDE
     Dosage: 20 MG, PRN
     Route: 065
  78. DABIGATRAN [Interacting]
     Active Substance: DABIGATRAN
     Indication: Product used for unknown indication
  79. ACETAMINOPHEN [Interacting]
     Active Substance: ACETAMINOPHEN
     Indication: Product used for unknown indication
  80. POTASSIUM CHLORIDE [Interacting]
     Active Substance: POTASSIUM CHLORIDE
     Indication: Product used for unknown indication
     Dosage: 1 TABLET, UNK 391 K+ (1 TAB EVERY OTHER DAY)
     Route: 065
  81. GLICLAZIDE [Interacting]
     Active Substance: GLICLAZIDE
     Indication: Product used for unknown indication
  82. VORTIOXETINE [Suspect]
     Active Substance: VORTIOXETINE
  83. TRAMADOL HYDROCHLORIDE [Interacting]
     Active Substance: TRAMADOL HYDROCHLORIDE
     Dosage: 2 TABLET, PRN, STRENGTH 100 MG
     Route: 048
  84. CITALOPRAM [Interacting]
     Active Substance: CITALOPRAM HYDROBROMIDE
     Indication: Product used for unknown indication
  85. DEXTROSE [Interacting]
     Active Substance: DEXTROSE
     Indication: Product used for unknown indication
     Dosage: 1.5 MG, UNK (1.5+125 MG) AS NEEDED
     Route: 065
  86. ALLOPURINOL [Interacting]
     Active Substance: ALLOPURINOL
     Indication: Product used for unknown indication
  87. OMEPRAZOLE [Interacting]
     Active Substance: OMEPRAZOLE
     Indication: Product used for unknown indication
  88. BENSERAZIDE\LEVODOPA [Suspect]
     Active Substance: BENSERAZIDE\LEVODOPA
     Dosage: 62.5 MG, TID
     Route: 065
  89. HYDROCHLOROTHIAZIDE [Interacting]
     Active Substance: HYDROCHLOROTHIAZIDE
     Indication: Product used for unknown indication
  90. METOPROLOL [Interacting]
     Active Substance: METOPROLOL
     Indication: Product used for unknown indication
  91. ALBUTEROL [Interacting]
     Active Substance: ALBUTEROL
     Indication: Product used for unknown indication
  92. OMEPRAZOLE [Suspect]
     Active Substance: OMEPRAZOLE
     Indication: Product used for unknown indication
     Dosage: 100 MG, BID
     Route: 065
  93. METOCLOPRAMIDE [Interacting]
     Active Substance: METOCLOPRAMIDE
     Indication: Product used for unknown indication
  94. DONEPEZIL [Suspect]
     Active Substance: DONEPEZIL
     Dosage: 5 MG
     Route: 065

REACTIONS (60)
  - Urinary retention [Unknown]
  - Blood urea increased [Unknown]
  - Dementia [Unknown]
  - Arthralgia [Unknown]
  - Hypoglycaemia [Unknown]
  - Fall [Unknown]
  - Osteoporosis [Unknown]
  - Product administration error [Unknown]
  - Blood creatine increased [Unknown]
  - Blood cholesterol decreased [Unknown]
  - Parkinsonism [Unknown]
  - Pruritus [Unknown]
  - Insomnia [Unknown]
  - Drug dependence [Unknown]
  - Abdominal pain upper [Unknown]
  - Nausea [Unknown]
  - Syncope [Unknown]
  - Multiple drug therapy [Unknown]
  - Depression [Unknown]
  - Hypotension [Unknown]
  - Hyponatraemia [Unknown]
  - Blood potassium increased [Unknown]
  - Melaena [Unknown]
  - Off label use [Unknown]
  - Dizziness [Recovering/Resolving]
  - Muscle rigidity [Unknown]
  - Motor dysfunction [Recovering/Resolving]
  - Bradykinesia [Unknown]
  - Peripheral circulatory failure [Unknown]
  - Abdominal pain upper [Unknown]
  - Diabetes mellitus inadequate control [Unknown]
  - Sedation [Recovering/Resolving]
  - Cognitive disorder [Unknown]
  - Drug interaction [Unknown]
  - Mobility decreased [Recovering/Resolving]
  - Product use issue [Recovered/Resolved]
  - Fall [Unknown]
  - Dizziness [Unknown]
  - Arthralgia [Unknown]
  - Drug ineffective [Unknown]
  - Dementia [Unknown]
  - Constipation [Unknown]
  - Hyponatraemia [Unknown]
  - Initial insomnia [Unknown]
  - Hypotension [Unknown]
  - Hypoglycaemia [Unknown]
  - Urinary retention [Unknown]
  - Melaena [Unknown]
  - Pruritus [Unknown]
  - Depression [Unknown]
  - Mobility decreased [Unknown]
  - Nausea [Unknown]
  - Multiple drug therapy [Unknown]
  - Hyperglycaemia [Unknown]
  - Abdominal pain upper [Unknown]
  - Drug dependence [Unknown]
  - Medication error [Unknown]
  - Syncope [Unknown]
  - Cognitive disorder [Unknown]
  - Parkinsonism [Unknown]

NARRATIVE: CASE EVENT DATE: 20210101
